FAERS Safety Report 9806999 (Version 2)
Quarter: 2014Q1

REPORT INFORMATION
  Report Type: Report from Study
  Country: US (occurrence: US)
  Receive Date: 20140109
  Receipt Date: 20140109
  Transmission Date: 20141002
  Serious: Yes (Other)
  Sender: FDA-Public Use
  Company Number: US-ROCHE-772077

PATIENT
  Age: 11 Year
  Sex: Male

DRUGS (4)
  1. VISMODEGIB [Suspect]
     Indication: MEDULLOBLASTOMA
     Dosage: CYCLE 1: 150 MG, QD, ON DAYS 1, AND 4-28 DAYS
     Route: 048
  2. VISMODEGIB [Suspect]
     Dosage: CYCLE 2: 150 MG, QD
     Route: 048
  3. BACTRIM [Suspect]
     Indication: PRODUCT USED FOR UNKNOWN INDICATION
     Dosage: 400-80 MG
     Route: 065
  4. ZYRTEC [Suspect]
     Indication: PRODUCT USED FOR UNKNOWN INDICATION
     Route: 065

REACTIONS (1)
  - Neutrophil count decreased [Recovering/Resolving]
